FAERS Safety Report 8095266-3 (Version None)
Quarter: 2012Q1

REPORT INFORMATION
  Report Type: 
  Country: None (occurrence: None)
  Receive Date: 20120129
  Receipt Date: 20111219
  Transmission Date: 20120608
  Serious: No
  Sender: FDA-Public Use
  Company Number: US-ABBOTT-11P-163-0884723-00

PATIENT
  Age: 76 Year
  Sex: Female

DRUGS (4)
  1. ATENOLOL [Concomitant]
     Indication: BLOOD PRESSURE
     Dosage: DAILY
  2. HUMIRA [Suspect]
     Indication: CROHN'S DISEASE
     Dates: start: 20110926
  3. PAROXETINE HCL [Concomitant]
     Indication: DEPRESSION
     Dosage: DAILY
  4. LISINOPRIL [Concomitant]
     Indication: BLOOD PRESSURE
     Dosage: DAILY

REACTIONS (1)
  - INJECTION SITE PAIN [None]
